FAERS Safety Report 5333547-4 (Version None)
Quarter: 2007Q2

REPORT INFORMATION
  Report Type: 
  Country: None (occurrence: None)
  Receive Date: 20070524
  Receipt Date: 20070515
  Transmission Date: 20071010
  Serious: Yes (Hospitalization)
  Sender: FDA-Public Use
  Company Number: US-JNJFOC-20070504335

PATIENT
  Sex: Female
  Weight: 59.42 kg

DRUGS (9)
  1. DURAGESIC-100 [Suspect]
     Indication: PAIN
     Route: 062
  2. NITROGLYCERIN [Suspect]
     Indication: CHEST PAIN
     Route: 065
  3. ATENOLOL [Concomitant]
     Indication: CARDIAC FAILURE CONGESTIVE
     Route: 048
  4. COUMADIN [Concomitant]
     Dosage: ONE ON TUES, THURS, FRI, SAT, SUN
     Route: 048
  5. COUMADIN [Concomitant]
     Indication: THROMBOSIS PROPHYLAXIS
     Dosage: ONE ON MON, WED
     Route: 048
  6. LASIX [Concomitant]
     Indication: SWELLING
     Route: 048
  7. POTASSIUM ACETATE [Concomitant]
     Indication: BLOOD POTASSIUM DECREASED
     Route: 048
  8. PREVACID [Concomitant]
     Indication: GASTROOESOPHAGEAL REFLUX DISEASE
     Route: 048
  9. CHANTIX [Concomitant]
     Indication: SMOKING CESSATION THERAPY
     Route: 048

REACTIONS (4)
  - CHEST PAIN [None]
  - CORONARY ARTERY OCCLUSION [None]
  - HYPOTENSION [None]
  - MUSCULAR WEAKNESS [None]
